FAERS Safety Report 4884096-9 (Version None)
Quarter: 2006Q1

REPORT INFORMATION
  Report Type: 
  Country: None (occurrence: None)
  Receive Date: 20060118
  Receipt Date: 20050805
  Transmission Date: 20060701
  Serious: Yes (Hospitalization)
  Sender: FDA-Public Use
  Company Number: US-MERCK-0508USA01481

PATIENT
  Age: 70 Year
  Sex: Female
  Weight: 68 kg

DRUGS (4)
  1. VIOXX [Suspect]
     Indication: OSTEOARTHRITIS
     Route: 048
     Dates: start: 19991201, end: 20040901
  2. SYNTHROID [Concomitant]
     Route: 065
  3. DILTIAZEM HYDROCHLORIDE [Concomitant]
     Route: 065
  4. FOSAMAX [Concomitant]
     Route: 065

REACTIONS (8)
  - ARTHRALGIA [None]
  - BACK PAIN [None]
  - CHEST PAIN [None]
  - CORONARY ARTERY OCCLUSION [None]
  - DIZZINESS [None]
  - FACIAL PARESIS [None]
  - INJURY [None]
  - INTERVERTEBRAL DISC DEGENERATION [None]
